FAERS Safety Report 5879709-9 (Version None)
Quarter: 2008Q3

REPORT INFORMATION
  Report Type: 
  Country: None (occurrence: None)
  Receive Date: 20080912
  Receipt Date: 20080908
  Transmission Date: 20090109
  Serious: Yes (Life-Threatening, Hospitalization, Disabling)
  Sender: FDA-Public Use
  Company Number: US-MERCK-0809USA00448

PATIENT
  Age: 56 Year
  Sex: Female

DRUGS (2)
  1. JANUMET [Suspect]
     Indication: DIABETES MELLITUS
     Route: 048
     Dates: start: 20080807
  2. METFORMIN [Concomitant]
     Route: 048
     Dates: end: 20080807

REACTIONS (1)
  - RENAL FAILURE ACUTE [None]
